FAERS Safety Report 9467684 (Version 2)
Quarter: 2014Q1

REPORT INFORMATION
  Report Type: Spontaneous
  Country: US (occurrence: US)
  Receive Date: 20130821
  Receipt Date: 20140123
  Transmission Date: 20141002
  Serious: Yes (Other)
  Sender: FDA-Public Use
  Company Number: US-BAYER-2013-100301

PATIENT
  Age: 21 Year
  Sex: Female

DRUGS (1)
  1. MIRENA [Suspect]
     Dosage: 20 MCG/24HR, CONT
     Route: 015
     Dates: start: 20071004, end: 20080318

REACTIONS (6)
  - Device dislocation [None]
  - Injury [None]
  - Abdominal pain lower [None]
  - Pain [None]
  - Cyst [None]
  - Abdominal pain [None]
